FAERS Safety Report 4803720-X (Version None)
Quarter: 2005Q3

REPORT INFORMATION
  Report Type: 
  Country: None (occurrence: None)
  Receive Date: 20050920
  Receipt Date: 20050804
  Transmission Date: 20060218
  Serious: No
  Sender: FDA-Public Use
  Company Number: US-YAMANOUCHI-YPA20050391

PATIENT
  Sex: Female

DRUGS (3)
  1. VESICARE [Suspect]
     Indication: HYPERTONIC BLADDER
     Dosage: 5 MG PO
     Route: 048
  2. VESICARE [Suspect]
     Indication: HYPERTONIC BLADDER
     Dosage: 10 MG PO
     Route: 048
     Dates: end: 20050701
  3. VESICARE [Suspect]
     Indication: HYPERTONIC BLADDER
     Dosage: 10 MG PO
     Route: 048
     Dates: start: 20050101

REACTIONS (1)
  - OEDEMA PERIPHERAL [None]
